FAERS Safety Report 7689505-8 (Version None)
Quarter: 2011Q3

REPORT INFORMATION
  Report Type: 
  Country: None (occurrence: None)
  Receive Date: 20110817
  Receipt Date: 20110519
  Transmission Date: 20111222
  Serious: No
  Sender: FDA-Public Use
  Company Number: US-TYCO HEALTHCARE/MALLINCKRODT-T201100808

PATIENT
  Sex: Male

DRUGS (4)
  1. ALL OTHER THERAPEUTIC PRODUCTS [Concomitant]
     Indication: PROSTATE CANCER
     Dosage: SHOT EVERY 6 MONS
  2. ALPRAZOLAM [Concomitant]
     Indication: NERVOUSNESS
     Dosage: 0.5 MG, TID
  3. FENTANYL-100 [Suspect]
     Indication: BACK PAIN
     Dosage: 1 PATCH EVERY 72 HOURS
     Dates: start: 20110301
  4. LORTAB [Concomitant]
     Indication: BREAKTHROUGH PAIN
     Dosage: 7.5/500 MG, TID

REACTIONS (3)
  - INAPPROPRIATE SCHEDULE OF DRUG ADMINISTRATION [None]
  - DRUG EFFECT DECREASED [None]
  - PARAESTHESIA [None]
